FAERS Safety Report 9154380 (Version 1)
Quarter: 2013Q1

REPORT INFORMATION
  Report Type: Spontaneous
  Country: GB (occurrence: None)
  Receive Date: 20130205
  Receipt Date: 20130205
  Transmission Date: 20140127
  Serious: Yes (Hospitalization, Other)
  Sender: FDA-Public Use
  Company Number: 1581721

PATIENT
  Age: 9 Year
  Sex: Female
  Weight: 10.25 kg

DRUGS (13)
  1. GENTAMICIN SULFATE [Suspect]
     Indication: CYSTIC FIBROSIS
     Dosage: PART OF THREE WEEK COURSE
     Route: 042
     Dates: end: 20130102
  2. ITRACONAZOLE [Concomitant]
  3. DORNASE ALFA [Concomitant]
  4. SERETIDE [Concomitant]
  5. VITAMIN A /00056001/ [Concomitant]
  6. VITAMIN D /00107901/ [Concomitant]
  7. VITAMIN E [Concomitant]
  8. VITAMIN K [Concomitant]
  9. OMEPRAZOLE [Concomitant]
  10. FLUCLOXACILLIN [Concomitant]
  11. CEFTAZIDIME [Concomitant]
  12. ERYTHROPOIETIN [Concomitant]
  13. LACTULOSE [Concomitant]

REACTIONS (1)
  - Renal failure acute [None]
